FAERS Safety Report 13080100 (Version 1)
Quarter: 2017Q1

REPORT INFORMATION
  Report Type: Spontaneous
  Country: BR (occurrence: BR)
  Receive Date: 20170103
  Receipt Date: 20170103
  Transmission Date: 20170428
  Serious: Yes (Congenital Anomaly)
  Sender: FDA-Public Use
  Company Number: BR-009507513-1612BRA002951

PATIENT
  Age: 0 Day
  Sex: Female
  Weight: 3.05 kg

DRUGS (11)
  1. FERROUS SULFATE. [Suspect]
     Active Substance: FERROUS SULFATE
     Route: 064
  2. RETROVIR [Suspect]
     Active Substance: ZIDOVUDINE
     Dosage: 1 MG/KG/HR
     Route: 064
     Dates: start: 20161111, end: 20161111
  3. ASPIRIN. [Suspect]
     Active Substance: ASPIRIN
     Route: 064
  4. METHYLDOPA. [Suspect]
     Active Substance: METHYLDOPA
     Route: 064
  5. HYDROCHLOROTHIAZIDE. [Suspect]
     Active Substance: HYDROCHLOROTHIAZIDE
     Route: 064
  6. FOLIC ACID. [Suspect]
     Active Substance: FOLIC ACID
     Route: 064
  7. RETROVIR [Suspect]
     Active Substance: ZIDOVUDINE
     Dosage: UNK
     Route: 064
  8. REYATAZ [Suspect]
     Active Substance: ATAZANAVIR SULFATE
     Dosage: UNK
     Route: 064
  9. RITONAVIR. [Suspect]
     Active Substance: RITONAVIR
     Dosage: UNK
     Route: 064
  10. LOSARTAN POTASSIUM. [Suspect]
     Active Substance: LOSARTAN POTASSIUM
     Route: 064
  11. LAMIVUDINE AND TENOFOVIR DISOPROXIL FUMARATE [Suspect]
     Active Substance: LAMIVUDINE\TENOFOVIR DISOPROXIL FUMARATE
     Dosage: UNK
     Route: 064

REACTIONS (2)
  - Foetal exposure during pregnancy [Unknown]
  - Congenital naevus [Unknown]

NARRATIVE: CASE EVENT DATE: 20161111
